FAERS Safety Report 10203961 (Version 1)
Quarter: 2014Q2

REPORT INFORMATION
  Report Type: Spontaneous
  Country: US (occurrence: None)
  Receive Date: 20140523
  Receipt Date: 20140523
  Transmission Date: 20141212
  Serious: Yes (Hospitalization, Other)
  Sender: FDA-Public Use
  Company Number: UTC-045416

PATIENT
  Age: 44 Year
  Sex: Male
  Weight: 129 kg

DRUGS (3)
  1. REMODULIN [Suspect]
     Indication: COR PULMONALE CHRONIC
     Route: 058
     Dates: start: 20120730
  2. LETAIRIS (AMBRISENTAN) [Concomitant]
  3. ADCIRCA (TADALAFIL) [Concomitant]

REACTIONS (8)
  - Dyspnoea [None]
  - Coma [None]
  - Apparent death [None]
  - Respiratory arrest [None]
  - Injection site discharge [None]
  - Infusion site reaction [None]
  - Hypoaesthesia [None]
  - Hypoaesthesia [None]
